FAERS Safety Report 10639090 (Version 2)
Quarter: 2014Q4

REPORT INFORMATION
  Report Type: Spontaneous
  Country: US (occurrence: US)
  Receive Date: 20141208
  Receipt Date: 20141231
  Transmission Date: 20150529
  Serious: Yes (Hospitalization, Other)
  Sender: FDA-Public Use
  Company Number: US-GILEAD-2014-0125618

PATIENT
  Age: 55 Year
  Sex: Female

DRUGS (4)
  1. LETAIRIS [Suspect]
     Active Substance: AMBRISENTAN
     Indication: PRODUCT USED FOR UNKNOWN INDICATION
     Dosage: 5 MG, QD
     Route: 065
     Dates: start: 20130611
  2. SILDENAFIL. [Concomitant]
     Active Substance: SILDENAFIL
  3. REVATIO [Concomitant]
     Active Substance: SILDENAFIL CITRATE
  4. TRACLEER [Concomitant]
     Active Substance: BOSENTAN\BOSENTAN MONOHYDRATE

REACTIONS (4)
  - Renal disorder [Unknown]
  - Abdominal pain [Unknown]
  - Fluid retention [Unknown]
  - Renal failure [Unknown]
